FAERS Safety Report 24682262 (Version 1)
Quarter: 2024Q4

REPORT INFORMATION
  Report Type: Spontaneous
  Country: CN (occurrence: CN)
  Receive Date: 20241130
  Receipt Date: 20241130
  Transmission Date: 20250114
  Serious: Yes (Other)
  Sender: ACCORD
  Company Number: None

PATIENT
  Age: 57 Year
  Sex: Female

DRUGS (2)
  1. TRASTUZUMAB [Suspect]
     Active Substance: TRASTUZUMAB
     Indication: Invasive ductal breast carcinoma
     Dosage: 240 MILLIGRAM, Q3W
     Route: 042
     Dates: start: 20241112, end: 20241112
  2. DOCETAXEL [Suspect]
     Active Substance: DOCETAXEL
     Indication: Invasive ductal breast carcinoma
     Dosage: 100 MILLIGRAM, Q3W
     Route: 042
     Dates: start: 20241114, end: 20241114

REACTIONS (3)
  - Myelosuppression [Recovering/Resolving]
  - Gastrointestinal disorder [Recovering/Resolving]
  - Hepatic function abnormal [Recovering/Resolving]

NARRATIVE: CASE EVENT DATE: 20241113
